FAERS Safety Report 5130622-4 (Version None)
Quarter: 2006Q3

REPORT INFORMATION
  Report Type: 
  Country: None (occurrence: None)
  Receive Date: 20060829
  Receipt Date: 20060510
  Transmission Date: 20061208
  Serious: No
  Sender: FDA-Public Use
  Company Number: PHEH2006US06181

PATIENT
  Age: 32 Year
  Sex: Female

DRUGS (5)
  1. EXJADE [Suspect]
     Indication: BLOOD IRON INCREASED
     Dosage: 2000 MG, QD, ORAL
     Route: 048
     Dates: start: 20060321
  2. PENICILLIN [Concomitant]
  3. SYNTHROID [Concomitant]
  4. EFFEXOR [Concomitant]
  5. KLONOPIN [Concomitant]

REACTIONS (2)
  - DYSGEUSIA [None]
  - NAUSEA [None]
